FAERS Safety Report 7605498-3 (Version None)
Quarter: 2011Q3

REPORT INFORMATION
  Report Type: 
  Country: None (occurrence: None)
  Receive Date: 20110713
  Receipt Date: 20110708
  Transmission Date: 20111222
  Serious: No
  Sender: FDA-Public Use
  Company Number: US-PFIZER INC-2011154563

PATIENT
  Sex: Male
  Weight: 70.295 kg

DRUGS (6)
  1. ALBUTEROL SULFATE AUTOHALER [Concomitant]
     Dosage: UNK
  2. LEUPROLIDE ACETATE [Concomitant]
     Dosage: UNK
  3. SPIRIVA [Concomitant]
     Dosage: UNK
  4. ACETYLSALICYLIC ACID [Concomitant]
     Dosage: 81 MG, UNK
  5. SIMVASTATIN [Concomitant]
     Dosage: UNK
  6. SUTENT [Suspect]
     Indication: RENAL CANCER
     Dosage: 37.5 MG, 1X/DAY
     Route: 048
     Dates: start: 20110621

REACTIONS (5)
  - CONSTIPATION [None]
  - ORAL PAIN [None]
  - VOMITING [None]
  - NAUSEA [None]
  - DYSGEUSIA [None]
